FAERS Safety Report 25503118 (Version 1)
Quarter: 2025Q3

REPORT INFORMATION
  Report Type: Spontaneous
  Country: CA (occurrence: CA)
  Receive Date: 20250702
  Receipt Date: 20250702
  Transmission Date: 20251021
  Serious: Yes (Death, Life-Threatening, Hospitalization, Disabling, Congenital Anomaly, Other)
  Sender: GLAXOSMITHKLINE
  Company Number: CA-GSK-CA2025AMR075428

PATIENT
  Age: 80 Year
  Sex: Female
  Weight: 69 kg

DRUGS (170)
  1. BREO ELLIPTA [Suspect]
     Active Substance: FLUTICASONE FUROATE\VILANTEROL TRIFENATATE
     Indication: Off label use
     Dosage: 1 IU, QD
  2. BREO ELLIPTA [Suspect]
     Active Substance: FLUTICASONE FUROATE\VILANTEROL TRIFENATATE
     Indication: Nutritional supplementation
     Dosage: 1 IU, QD
  3. BREO ELLIPTA [Suspect]
     Active Substance: FLUTICASONE FUROATE\VILANTEROL TRIFENATATE
     Indication: Intentional product misuse
  4. BREO ELLIPTA [Suspect]
     Active Substance: FLUTICASONE FUROATE\VILANTEROL TRIFENATATE
     Indication: Dyspnoea
  5. BREO ELLIPTA [Suspect]
     Active Substance: FLUTICASONE FUROATE\VILANTEROL TRIFENATATE
     Indication: Blood phosphorus increased
  6. ALBUTEROL [Suspect]
     Active Substance: ALBUTEROL
     Indication: Off label use
  7. ALBUTEROL [Suspect]
     Active Substance: ALBUTEROL
     Indication: Intentional product misuse
  8. ALBUTEROL [Suspect]
     Active Substance: ALBUTEROL
     Indication: Chronic obstructive pulmonary disease
     Dosage: UNK UNK, QD
     Route: 050
  9. ALBUTEROL [Suspect]
     Active Substance: ALBUTEROL
     Dosage: UNK, QD
  10. ALBUTEROL [Suspect]
     Active Substance: ALBUTEROL
     Route: 065
  11. ALBUTEROL [Suspect]
     Active Substance: ALBUTEROL
     Route: 065
  12. ALBUTEROL [Suspect]
     Active Substance: ALBUTEROL
  13. ALBUTEROL [Suspect]
     Active Substance: ALBUTEROL
     Route: 065
  14. ALBUTEROL [Suspect]
     Active Substance: ALBUTEROL
     Route: 050
  15. ALBUTEROL [Suspect]
     Active Substance: ALBUTEROL
     Route: 050
  16. ALBUTEROL [Suspect]
     Active Substance: ALBUTEROL
     Dosage: 4 DF, QD
     Route: 065
  17. ALBUTEROL [Suspect]
     Active Substance: ALBUTEROL
     Route: 065
  18. ALBUTEROL [Suspect]
     Active Substance: ALBUTEROL
  19. ALBUTEROL [Suspect]
     Active Substance: ALBUTEROL
  20. ALBUTEROL [Suspect]
     Active Substance: ALBUTEROL
     Dosage: 4 DF, QD
  21. ALBUTEROL [Suspect]
     Active Substance: ALBUTEROL
     Route: 065
  22. ALBUTEROL [Suspect]
     Active Substance: ALBUTEROL
     Route: 050
  23. SALMETEROL XINAFOATE [Suspect]
     Active Substance: SALMETEROL XINAFOATE
     Indication: Product used for unknown indication
     Route: 065
  24. TRELEGY ELLIPTA [Suspect]
     Active Substance: FLUTICASONE FUROATE\UMECLIDINIUM BROMIDE\VILANTEROL TRIFENATATE
     Indication: Off label use
  25. TRELEGY ELLIPTA [Suspect]
     Active Substance: FLUTICASONE FUROATE\UMECLIDINIUM BROMIDE\VILANTEROL TRIFENATATE
     Indication: Intentional product misuse
     Route: 065
  26. UMECLIDINIUM BROMIDE [Suspect]
     Active Substance: UMECLIDINIUM BROMIDE
     Indication: Dyspnoea
     Route: 065
  27. UMECLIDINIUM BROMIDE [Suspect]
     Active Substance: UMECLIDINIUM BROMIDE
  28. UMECLIDINIUM BROMIDE [Suspect]
     Active Substance: UMECLIDINIUM BROMIDE
     Dosage: UNK UNK, QD
  29. UMECLIDINIUM BROMIDE [Suspect]
     Active Substance: UMECLIDINIUM BROMIDE
  30. UMECLIDINIUM BROMIDE [Suspect]
     Active Substance: UMECLIDINIUM BROMIDE
  31. UMECLIDINIUM BROMIDE\VILANTEROL TRIFENATATE [Suspect]
     Active Substance: UMECLIDINIUM BROMIDE\VILANTEROL TRIFENATATE
     Indication: Dyspnoea
     Dosage: 1 IU, QD
  32. UMECLIDINIUM BROMIDE\VILANTEROL TRIFENATATE [Suspect]
     Active Substance: UMECLIDINIUM BROMIDE\VILANTEROL TRIFENATATE
  33. UMECLIDINIUM BROMIDE\VILANTEROL TRIFENATATE [Suspect]
     Active Substance: UMECLIDINIUM BROMIDE\VILANTEROL TRIFENATATE
  34. ACETAMINOPHEN [Suspect]
     Active Substance: ACETAMINOPHEN
     Indication: Off label use
     Dosage: 5 MG, QD
  35. ACETAMINOPHEN [Suspect]
     Active Substance: ACETAMINOPHEN
     Indication: Analgesic therapy
     Dosage: 650 MG, QD
  36. ACETAMINOPHEN [Suspect]
     Active Substance: ACETAMINOPHEN
     Route: 065
  37. ARANESP [Suspect]
     Active Substance: DARBEPOETIN ALFA
     Indication: Anaemia
     Dosage: 20 ML, WE
     Route: 065
  38. ARANESP [Suspect]
     Active Substance: DARBEPOETIN ALFA
     Route: 065
  39. ARANESP [Suspect]
     Active Substance: DARBEPOETIN ALFA
     Dosage: 0.71 MG, 2W
     Route: 065
  40. ARANESP [Suspect]
     Active Substance: DARBEPOETIN ALFA
     Dosage: 0.71 UG, QD
  41. ARANESP [Suspect]
     Active Substance: DARBEPOETIN ALFA
     Dosage: 0.71 UG, WE
  42. ARANESP [Suspect]
     Active Substance: DARBEPOETIN ALFA
     Dosage: 20 MG, WE
  43. ARANESP [Suspect]
     Active Substance: DARBEPOETIN ALFA
     Dosage: 0.2 UG, WE
  44. ARANESP [Suspect]
     Active Substance: DARBEPOETIN ALFA
     Dosage: 10 MG, WE
  45. ARANESP [Suspect]
     Active Substance: DARBEPOETIN ALFA
     Dosage: 1.42 UG, WE
  46. ARANESP [Suspect]
     Active Substance: DARBEPOETIN ALFA
  47. ARANESP [Suspect]
     Active Substance: DARBEPOETIN ALFA
  48. ARANESP [Suspect]
     Active Substance: DARBEPOETIN ALFA
  49. ARANESP [Suspect]
     Active Substance: DARBEPOETIN ALFA
  50. ARANESP [Suspect]
     Active Substance: DARBEPOETIN ALFA
     Dosage: 0.2 UG, WE
     Route: 065
  51. ATROVENT [Suspect]
     Active Substance: IPRATROPIUM BROMIDE
     Indication: Somnolence
     Route: 065
  52. ATROVENT [Suspect]
     Active Substance: IPRATROPIUM BROMIDE
     Indication: Sleep disorder therapy
  53. ATROVENT [Suspect]
     Active Substance: IPRATROPIUM BROMIDE
     Indication: Dyspnoea
     Dosage: 3 DF, QD
     Route: 065
  54. ATROVENT [Suspect]
     Active Substance: IPRATROPIUM BROMIDE
     Route: 050
  55. ATROVENT [Suspect]
     Active Substance: IPRATROPIUM BROMIDE
     Route: 050
  56. ATROVENT [Suspect]
     Active Substance: IPRATROPIUM BROMIDE
  57. ATROVENT [Suspect]
     Active Substance: IPRATROPIUM BROMIDE
     Route: 065
  58. ATROVENT [Suspect]
     Active Substance: IPRATROPIUM BROMIDE
     Route: 050
  59. ATROVENT [Suspect]
     Active Substance: IPRATROPIUM BROMIDE
     Route: 065
  60. ATROVENT [Suspect]
     Active Substance: IPRATROPIUM BROMIDE
  61. ATROVENT [Suspect]
     Active Substance: IPRATROPIUM BROMIDE
  62. ATROVENT [Suspect]
     Active Substance: IPRATROPIUM BROMIDE
     Dosage: UNK, QD
  63. ATROVENT [Suspect]
     Active Substance: IPRATROPIUM BROMIDE
     Route: 065
  64. ATROVENT [Suspect]
     Active Substance: IPRATROPIUM BROMIDE
     Route: 050
  65. BETAMETHASONE [Suspect]
     Active Substance: BETAMETHASONE
     Indication: Swelling
     Route: 065
  66. BETAMETHASONE [Suspect]
     Active Substance: BETAMETHASONE
     Indication: Off label use
     Dosage: 1 DF, QD
     Route: 065
  67. BETAMETHASONE [Suspect]
     Active Substance: BETAMETHASONE
     Dosage: 10 MG, QD
  68. BETAMETHASONE [Suspect]
     Active Substance: BETAMETHASONE
     Route: 065
  69. BETAMETHASONE [Suspect]
     Active Substance: BETAMETHASONE
     Dosage: UNK UNK, QD
  70. BETAMETHASONE [Suspect]
     Active Substance: BETAMETHASONE
     Route: 065
  71. BETAMETHASONE [Suspect]
     Active Substance: BETAMETHASONE
  72. CALCITRIOL [Suspect]
     Active Substance: CALCITRIOL
     Indication: Vitamin supplementation
     Dosage: 0.25 UG, QD
  73. CALCITRIOL [Suspect]
     Active Substance: CALCITRIOL
     Indication: Hypovitaminosis
  74. CALCITRIOL [Suspect]
     Active Substance: CALCITRIOL
     Dosage: UNK UNK, QD
  75. CALCITRIOL [Suspect]
     Active Substance: CALCITRIOL
     Dosage: 0.25 MG, QD
  76. CALCITRIOL [Suspect]
     Active Substance: CALCITRIOL
     Dosage: 0.25 UG, QD
  77. CALCITRIOL [Suspect]
     Active Substance: CALCITRIOL
  78. CALCITRIOL [Suspect]
     Active Substance: CALCITRIOL
  79. CALCITRIOL [Suspect]
     Active Substance: CALCITRIOL
  80. CEFTRIAXONE SODIUM [Suspect]
     Active Substance: CEFTRIAXONE SODIUM
     Indication: Bacterial infection
     Dosage: 2 G, QD
  81. CEFTRIAXONE SODIUM [Suspect]
     Active Substance: CEFTRIAXONE SODIUM
     Dosage: 2 G, QD
  82. CEFTRIAXONE SODIUM [Suspect]
     Active Substance: CEFTRIAXONE SODIUM
     Dosage: 2 G, QD
  83. CEFTRIAXONE SODIUM [Suspect]
     Active Substance: CEFTRIAXONE SODIUM
     Route: 065
  84. CEFTRIAXONE SODIUM [Suspect]
     Active Substance: CEFTRIAXONE SODIUM
     Dosage: 2 G, QD
     Route: 065
  85. DEXLANSOPRAZOLE [Suspect]
     Active Substance: DEXLANSOPRAZOLE
     Indication: Product used for unknown indication
     Route: 065
  86. DULCOLAX (BISACODYL) [Suspect]
     Active Substance: BISACODYL
     Indication: Ventricular fibrillation
  87. DULCOLAX (BISACODYL) [Suspect]
     Active Substance: BISACODYL
     Indication: Off label use
     Dosage: 10 MG, QD
  88. DULCOLAX (BISACODYL) [Suspect]
     Active Substance: BISACODYL
     Indication: Intentional product misuse
     Route: 065
  89. DULCOLAX (BISACODYL) [Suspect]
     Active Substance: BISACODYL
     Indication: Drug therapy
     Route: 065
  90. DULCOLAX (BISACODYL) [Suspect]
     Active Substance: BISACODYL
     Indication: Constipation
     Dosage: 10 MG, QD
     Route: 065
  91. FENOTEROL\IPRATROPIUM [Suspect]
     Active Substance: FENOTEROL\IPRATROPIUM
     Indication: Dyspnoea
     Dosage: 4 IU, QD
     Route: 065
  92. FENOTEROL\IPRATROPIUM [Suspect]
     Active Substance: FENOTEROL\IPRATROPIUM
     Dosage: 1 DF, QD
     Route: 065
  93. FENOTEROL\IPRATROPIUM [Suspect]
     Active Substance: FENOTEROL\IPRATROPIUM
     Route: 065
  94. FENOTEROL\IPRATROPIUM [Suspect]
     Active Substance: FENOTEROL\IPRATROPIUM
     Dosage: UNK UNK, QD
     Route: 065
  95. FENOTEROL\IPRATROPIUM [Suspect]
     Active Substance: FENOTEROL\IPRATROPIUM
     Route: 065
  96. FLONASE ALLERGY RELIEF [Suspect]
     Active Substance: FLUTICASONE PROPIONATE
     Indication: Off label use
     Route: 065
  97. FLONASE ALLERGY RELIEF [Suspect]
     Active Substance: FLUTICASONE PROPIONATE
     Indication: Nutritional supplementation
     Route: 065
  98. FLONASE ALLERGY RELIEF [Suspect]
     Active Substance: FLUTICASONE PROPIONATE
     Indication: Intentional product misuse
  99. FLONASE ALLERGY RELIEF [Suspect]
     Active Substance: FLUTICASONE PROPIONATE
     Indication: Blood phosphorus increased
  100. FRAGMIN [Suspect]
     Active Substance: DALTEPARIN SODIUM
     Indication: Thrombosis
     Route: 065
  101. FRAGMIN [Suspect]
     Active Substance: DALTEPARIN SODIUM
     Indication: Pulmonary embolism
     Route: 065
  102. FRAGMIN [Suspect]
     Active Substance: DALTEPARIN SODIUM
  103. FRAGMIN [Suspect]
     Active Substance: DALTEPARIN SODIUM
     Route: 065
  104. FRAGMIN [Suspect]
     Active Substance: DALTEPARIN SODIUM
  105. POLYETHYLENE GLYCOL 3350 [Suspect]
     Active Substance: POLYETHYLENE GLYCOL 3350
     Indication: Constipation
  106. POLYETHYLENE GLYCOL 3350 [Suspect]
     Active Substance: POLYETHYLENE GLYCOL 3350
     Dosage: 17 MG, QD
     Route: 065
  107. POLYETHYLENE GLYCOL 3350 [Suspect]
     Active Substance: POLYETHYLENE GLYCOL 3350
     Dosage: 3 MG, QD
  108. POLYETHYLENE GLYCOL 3350 [Suspect]
     Active Substance: POLYETHYLENE GLYCOL 3350
     Dosage: 17 MG, QD
  109. POLYETHYLENE GLYCOL 3350 [Suspect]
     Active Substance: POLYETHYLENE GLYCOL 3350
  110. POLYETHYLENE GLYCOL 3350 [Suspect]
     Active Substance: POLYETHYLENE GLYCOL 3350
     Dosage: 17 G, QD
  111. POLYETHYLENE GLYCOL 3350 [Suspect]
     Active Substance: POLYETHYLENE GLYCOL 3350
     Dosage: UNK UNK, QD
  112. POLYETHYLENE GLYCOL 3350 [Suspect]
     Active Substance: POLYETHYLENE GLYCOL 3350
  113. POLYETHYLENE GLYCOL 3350 [Suspect]
     Active Substance: POLYETHYLENE GLYCOL 3350
     Route: 065
  114. POLYETHYLENE GLYCOL 3350 [Suspect]
     Active Substance: POLYETHYLENE GLYCOL 3350
     Route: 065
  115. POLYETHYLENE GLYCOL 3350 [Suspect]
     Active Substance: POLYETHYLENE GLYCOL 3350
  116. NOREPINEPHRINE BITARTRATE [Suspect]
     Active Substance: NOREPINEPHRINE BITARTRATE
     Indication: Stress
     Dosage: 3 MG, QD
  117. NOREPINEPHRINE BITARTRATE [Suspect]
     Active Substance: NOREPINEPHRINE BITARTRATE
     Indication: Off label use
     Dosage: 1 DF, QD
  118. NOREPINEPHRINE BITARTRATE [Suspect]
     Active Substance: NOREPINEPHRINE BITARTRATE
     Indication: Intentional product misuse
     Dosage: 1 DF, QD
  119. NOREPINEPHRINE BITARTRATE [Suspect]
     Active Substance: NOREPINEPHRINE BITARTRATE
     Dosage: 3 MG, QD
  120. NOREPINEPHRINE BITARTRATE [Suspect]
     Active Substance: NOREPINEPHRINE BITARTRATE
  121. NOREPINEPHRINE BITARTRATE [Suspect]
     Active Substance: NOREPINEPHRINE BITARTRATE
  122. NOREPINEPHRINE BITARTRATE [Suspect]
     Active Substance: NOREPINEPHRINE BITARTRATE
     Dosage: 3 MG, QD
     Route: 065
  123. OSELTAMIVIR PHOSPHATE [Suspect]
     Active Substance: OSELTAMIVIR PHOSPHATE
     Indication: Product used for unknown indication
  124. OSELTAMIVIR PHOSPHATE [Suspect]
     Active Substance: OSELTAMIVIR PHOSPHATE
  125. OSELTAMIVIR PHOSPHATE [Suspect]
     Active Substance: OSELTAMIVIR PHOSPHATE
  126. OSELTAMIVIR PHOSPHATE [Suspect]
     Active Substance: OSELTAMIVIR PHOSPHATE
  127. OSELTAMIVIR PHOSPHATE [Suspect]
     Active Substance: OSELTAMIVIR PHOSPHATE
     Route: 065
  128. OTRIVIN [Suspect]
     Active Substance: XYLOMETAZOLINE
     Indication: Dyspnoea
  129. OTRIVIN [Suspect]
     Active Substance: XYLOMETAZOLINE
     Route: 065
  130. POTASSIUM CHLORATE [Suspect]
     Active Substance: POTASSIUM CHLORATE
     Indication: Constipation
     Dosage: 17 MG, QD
  131. POTASSIUM CHLORATE [Suspect]
     Active Substance: POTASSIUM CHLORATE
     Indication: Product used for unknown indication
     Route: 065
  132. POTASSIUM CHLORATE [Suspect]
     Active Substance: POTASSIUM CHLORATE
     Dosage: 17 G, QD
  133. POTASSIUM CHLORATE [Suspect]
     Active Substance: POTASSIUM CHLORATE
     Dosage: 17 G, QD
     Route: 065
  134. POTASSIUM CHLORATE [Suspect]
     Active Substance: POTASSIUM CHLORATE
     Dosage: 17 MG, QD
     Route: 065
  135. PYRIDOXINE HYDROCHLORIDE [Suspect]
     Active Substance: PYRIDOXINE HYDROCHLORIDE
     Indication: Constipation
     Dosage: UNK, QD
  136. PYRIDOXINE HYDROCHLORIDE [Suspect]
     Active Substance: PYRIDOXINE HYDROCHLORIDE
     Indication: Analgesic therapy
     Dosage: UNK, 1 EVERY .25 DAYS
  137. PYRIDOXINE HYDROCHLORIDE [Suspect]
     Active Substance: PYRIDOXINE HYDROCHLORIDE
     Indication: Vitamin supplementation
     Dosage: 10 MG, QD
     Route: 065
  138. PYRIDOXINE HYDROCHLORIDE [Suspect]
     Active Substance: PYRIDOXINE HYDROCHLORIDE
  139. SODIUM PHOSPHATE [Suspect]
     Active Substance: SODIUM PHOSPHATE
     Indication: Constipation
  140. SODIUM PHOSPHATE [Suspect]
     Active Substance: SODIUM PHOSPHATE
     Route: 065
  141. THEOPHYLLINE [Suspect]
     Active Substance: THEOPHYLLINE
     Indication: Product used for unknown indication
  142. VASOPRESSIN [Suspect]
     Active Substance: VASOPRESSIN
     Indication: Drug therapy
     Dosage: 50 ML, QD
  143. VASOPRESSIN [Suspect]
     Active Substance: VASOPRESSIN
     Dosage: 250 ML, QD
  144. VASOPRESSIN [Suspect]
     Active Substance: VASOPRESSIN
  145. VASOPRESSIN [Suspect]
     Active Substance: VASOPRESSIN
     Dosage: 1 IU, QD
     Route: 065
  146. VASOPRESSIN [Suspect]
     Active Substance: VASOPRESSIN
     Route: 065
  147. VASOPRESSIN [Suspect]
     Active Substance: VASOPRESSIN
  148. VASOPRESSIN [Suspect]
     Active Substance: VASOPRESSIN
     Dosage: 50 ML, QD
     Route: 065
  149. VILANTEROL TRIFENATATE [Suspect]
     Active Substance: VILANTEROL TRIFENATATE
     Indication: Nutritional supplementation
     Route: 065
  150. VILANTEROL TRIFENATATE [Suspect]
     Active Substance: VILANTEROL TRIFENATATE
     Indication: Dyspnoea
     Dosage: 1 IU, QD
  151. VILANTEROL TRIFENATATE [Suspect]
     Active Substance: VILANTEROL TRIFENATATE
  152. WARFARIN SODIUM [Suspect]
     Active Substance: WARFARIN SODIUM
     Indication: Thrombosis
     Dosage: 2 G, QD
  153. WARFARIN SODIUM [Suspect]
     Active Substance: WARFARIN SODIUM
     Indication: Off label use
  154. WARFARIN SODIUM [Suspect]
     Active Substance: WARFARIN SODIUM
     Indication: Intentional product misuse
     Dosage: 2 ML, QD
  155. WARFARIN SODIUM [Suspect]
     Active Substance: WARFARIN SODIUM
  156. WARFARIN SODIUM [Suspect]
     Active Substance: WARFARIN SODIUM
  157. WARFARIN SODIUM [Suspect]
     Active Substance: WARFARIN SODIUM
     Dosage: UNK UNK, QD
  158. WARFARIN SODIUM [Suspect]
     Active Substance: WARFARIN SODIUM
     Dosage: 2 G, QD
  159. WARFARIN SODIUM [Suspect]
     Active Substance: WARFARIN SODIUM
     Dosage: 2 ML, QD
     Route: 065
  160. XANTOFYL PALMITATE [Suspect]
     Active Substance: XANTOFYL PALMITATE
     Indication: Nutritional supplementation
  161. XANTOFYL PALMITATE [Suspect]
     Active Substance: XANTOFYL PALMITATE
     Indication: Off label use
     Dosage: 5 MG, QD
  162. XANTOFYL PALMITATE [Suspect]
     Active Substance: XANTOFYL PALMITATE
     Indication: Intentional product misuse
  163. XANTOFYL PALMITATE [Suspect]
     Active Substance: XANTOFYL PALMITATE
     Route: 065
  164. ZOCOR [Suspect]
     Active Substance: SIMVASTATIN
     Indication: Vitamin supplementation
     Dosage: 40 MG, QD
  165. ZOCOR [Suspect]
     Active Substance: SIMVASTATIN
     Indication: Off label use
     Dosage: UNK UNK, QD
  166. ZOCOR [Suspect]
     Active Substance: SIMVASTATIN
     Indication: Intentional product misuse
     Route: 065
  167. ZOCOR [Suspect]
     Active Substance: SIMVASTATIN
     Indication: Blood cholesterol increased
  168. ALLOPURINOL [Suspect]
     Active Substance: ALLOPURINOL
     Indication: Off label use
     Dosage: 100 MG, QD
  169. ALLOPURINOL [Suspect]
     Active Substance: ALLOPURINOL
     Indication: Intentional product misuse
     Dosage: 1 DF, QD
  170. ALLOPURINOL [Suspect]
     Active Substance: ALLOPURINOL
     Indication: Blood uric acid increased
     Route: 065

REACTIONS (35)
  - Death [Fatal]
  - Abdominal distension [Fatal]
  - Abdominal pain [Fatal]
  - Activated partial thromboplastin time prolonged [Fatal]
  - Anaemia [Fatal]
  - Analgesic therapy [Fatal]
  - Antacid therapy [Fatal]
  - Anticoagulant therapy [Fatal]
  - Aortic stenosis [Fatal]
  - Appendicitis [Fatal]
  - Appendicolith [Fatal]
  - Ascites [Fatal]
  - Aspartate aminotransferase increased [Fatal]
  - Bacterial infection [Fatal]
  - Blood calcium increased [Fatal]
  - Blood cholesterol increased [Fatal]
  - Blood creatinine increased [Fatal]
  - Blood phosphorus increased [Fatal]
  - Blood test abnormal [Fatal]
  - Blood uric acid increased [Fatal]
  - Cardiogenic shock [Fatal]
  - Chronic obstructive pulmonary disease [Fatal]
  - Condition aggravated [Fatal]
  - Constipation [Fatal]
  - Diabetes mellitus [Fatal]
  - Drug hypersensitivity [Fatal]
  - Drug intolerance [Fatal]
  - Drug therapy [Fatal]
  - Dry mouth [Fatal]
  - Dyspnoea [Fatal]
  - End stage renal disease [Fatal]
  - General physical health deterioration [Fatal]
  - Gout [Fatal]
  - Hyperlipidaemia [Fatal]
  - Hyperphosphataemia [Fatal]
